FAERS Safety Report 13134739 (Version 5)
Quarter: 2017Q1

REPORT INFORMATION
  Report Type: Spontaneous
  Country: FR (occurrence: FR)
  Receive Date: 20170120
  Receipt Date: 20170213
  Transmission Date: 20170428
  Serious: Yes (Death, Hospitalization, Other)
  Sender: FDA-Public Use
  Company Number: FR-PFIZER INC-2017023101

PATIENT
  Age: 70 Year
  Sex: Female

DRUGS (15)
  1. RAMIPRIL. [Suspect]
     Active Substance: RAMIPRIL
     Indication: MYOCARDIAL ISCHAEMIA
     Dosage: 1.25 MG, 1X/DAY
     Route: 048
  2. FUROSEMIDE. [Suspect]
     Active Substance: FUROSEMIDE
     Indication: MYOCARDIAL ISCHAEMIA
     Dosage: 40 MG, 1X/DAY
     Route: 048
  3. TRINITRINE [Concomitant]
     Active Substance: NITROGLYCERIN
     Dosage: UNK
  4. UPTRAVI [Suspect]
     Active Substance: SELEXIPAG
     Indication: PULMONARY ARTERIAL HYPERTENSION
     Dosage: 200 UG, 2X/DAY
     Route: 048
     Dates: start: 20160622, end: 20160628
  5. TRACLEER [Suspect]
     Active Substance: BOSENTAN
     Indication: PULMONARY ARTERIAL HYPERTENSION
     Dosage: 125 MG, 2X/DAY
     Route: 048
  6. DUOPLAVIN [Suspect]
     Active Substance: ASPIRIN\CLOPIDOGREL
     Indication: MYOCARDIAL ISCHAEMIA
     Dosage: ONE DOSAGE FORM, ONCE DAILY
     Route: 048
     Dates: end: 20160704
  7. INEXIUM [Suspect]
     Active Substance: ESOMEPRAZOLE
     Dosage: 20 MG, 1X/DAY
     Route: 048
     Dates: end: 20160704
  8. NATISPRAY [Concomitant]
     Active Substance: NITROGLYCERIN
     Dosage: UNK
  9. TENORMIN [Concomitant]
     Active Substance: ATENOLOL
     Dosage: UNK
  10. UPTRAVI [Suspect]
     Active Substance: SELEXIPAG
     Dosage: 400 UG, 2X/DAY
     Route: 048
     Dates: start: 20160629, end: 20160704
  11. BRILIQUE [Concomitant]
     Active Substance: TICAGRELOR
     Dosage: UNK
  12. REVATIO [Suspect]
     Active Substance: SILDENAFIL CITRATE
     Indication: PULMONARY ARTERIAL HYPERTENSION
     Dosage: 20 MG, 3X/DAY
     Route: 048
  13. BISOPROLOL FUMARATE. [Suspect]
     Active Substance: BISOPROLOL FUMARATE
     Indication: MYOCARDIAL ISCHAEMIA
     Dosage: 2.5 MG, 1X/DAY
     Route: 048
     Dates: end: 20160705
  14. FUROSEMIDE. [Suspect]
     Active Substance: FUROSEMIDE
     Dosage: 60 MG, 3X/DAY
     Route: 042
     Dates: start: 20160701, end: 20160701
  15. PARACETAMOL [Suspect]
     Active Substance: ACETAMINOPHEN
     Dosage: UNK UNK, AS NEEDED
     Route: 048

REACTIONS (13)
  - Condition aggravated [Fatal]
  - Tachycardia [Fatal]
  - Pain [Fatal]
  - Tachypnoea [Fatal]
  - Abdominal pain upper [Fatal]
  - Acute coronary syndrome [Fatal]
  - Dyspnoea [Fatal]
  - Condition aggravated [Fatal]
  - Renal failure [Fatal]
  - Cardio-respiratory arrest [Fatal]
  - Hypotension [Fatal]
  - Bundle branch block right [Unknown]
  - Product use issue [Unknown]

NARRATIVE: CASE EVENT DATE: 20160622
